FAERS Safety Report 16460415 (Version 2)
Quarter: 2019Q3

REPORT INFORMATION
  Report Type: Spontaneous
  Country: US (occurrence: US)
  Receive Date: 20190620
  Receipt Date: 20190724
  Transmission Date: 20191004
  Serious: No
  Sender: FDA-Public Use
  Company Number: US-AMGEN INC.-USASP2019097085

PATIENT
  Age: 81 Year
  Sex: Male
  Weight: 94.8 kg

DRUGS (2)
  1. AIMOVIG [Suspect]
     Active Substance: ERENUMAB-AOOE
     Dosage: 140 MILLIGRAM, QMO
     Route: 065
     Dates: start: 201904
  2. AIMOVIG [Suspect]
     Active Substance: ERENUMAB-AOOE
     Indication: MIGRAINE
     Dosage: 70 MILLIGRAM, QMO
     Route: 065
     Dates: start: 20180709, end: 201903

REACTIONS (7)
  - Accidental exposure to product [Unknown]
  - Accidental overdose [Unknown]
  - Constipation [Not Recovered/Not Resolved]
  - Hyperhidrosis [Unknown]
  - Device failure [Unknown]
  - Incorrect dose administered by device [Unknown]
  - Therapeutic product effect incomplete [Unknown]

NARRATIVE: CASE EVENT DATE: 2019
